FAERS Safety Report 10207447 (Version 2)
Quarter: 2014Q2

REPORT INFORMATION
  Report Type: Spontaneous
  Country: US (occurrence: US)
  Receive Date: 20140530
  Receipt Date: 20140530
  Transmission Date: 20141212
  Serious: Yes (Other)
  Sender: FDA-Public Use
  Company Number: US-BRISTOL-MYERS SQUIBB COMPANY-19466804

PATIENT
  Age: 45 Year
  Sex: Female

DRUGS (1)
  1. SUSTIVA [Suspect]
     Dates: start: 20130703

REACTIONS (1)
  - Drug resistance [Unknown]
